FAERS Safety Report 8770485 (Version 1)
Quarter: 2012Q4

REPORT INFORMATION
  Report Type: 
  Country: GB (occurrence: GB)
  Receive Date: 20120906
  Receipt Date: 20120906
  Transmission Date: 20130627
  Serious: Yes (Hospitalization, Disabling)
  Sender: FDA-Public Use
  Company Number: GB-SANOFI-AVENTIS-2012SA063425

PATIENT
  Sex: Male

DRUGS (7)
  1. HYDROXYCHLOROQUINE [Suspect]
     Indication: SERONEGATIVE ARTHRITIS
     Dosage: dose: 200, units not specified.
     Route: 065
     Dates: start: 201203, end: 201207
  2. ASPIRIN [Concomitant]
  3. SIMVASTATIN [Concomitant]
  4. CLOPIDOGREL [Concomitant]
  5. ACEBUTOLOL [Concomitant]
  6. FLUOXETINE [Concomitant]
  7. LANSOPRAZOLE [Concomitant]

REACTIONS (7)
  - Urinary tract disorder [Recovering/Resolving]
  - Haematuria [Recovering/Resolving]
  - Perineal pain [Recovering/Resolving]
  - Prostate tenderness [Recovering/Resolving]
  - Syncope [Recovering/Resolving]
  - Dyspnoea [Recovering/Resolving]
  - Movement disorder [Recovering/Resolving]
